FAERS Safety Report 5765583-8 (Version None)
Quarter: 2008Q2

REPORT INFORMATION
  Report Type: 
  Country: None (occurrence: None)
  Receive Date: 20080605
  Receipt Date: 20080527
  Transmission Date: 20081010
  Serious: Yes (Other)
  Sender: FDA-Public Use
  Company Number: 2008013855

PATIENT
  Age: 5 Year
  Sex: Male

DRUGS (1)
  1. NICORETTE [Suspect]
     Indication: WOUND
     Dosage: ONCE, TRANSDERMAL
     Route: 062
     Dates: start: 20080524, end: 20080524

REACTIONS (4)
  - ACCIDENTAL EXPOSURE [None]
  - APPLICATION SITE PUSTULES [None]
  - SKIN IRRITATION [None]
  - WRONG DRUG ADMINISTERED [None]
